FAERS Safety Report 5279951-4 (Version None)
Quarter: 2007Q1

REPORT INFORMATION
  Report Type: 
  Country: None (occurrence: None)
  Receive Date: 20070329
  Receipt Date: 20070321
  Transmission Date: 20070707
  Serious: Yes (Death, Hospitalization)
  Sender: FDA-Public Use
  Company Number: FR-JNJFOC-20070305065

PATIENT
  Age: 94 Year
  Sex: Male
  Weight: 90 kg

DRUGS (13)
  1. DURAGESIC-100 [Suspect]
     Indication: PAIN
     Route: 062
  2. ALLOPURINOL [Concomitant]
     Indication: DRUG USE FOR UNKNOWN INDICATION
     Route: 065
  3. PREVISCAN [Concomitant]
     Indication: MYOCARDIAL ISCHAEMIA
     Route: 065
  4. CORDARONE [Concomitant]
     Indication: ISCHAEMIC CARDIOMYOPATHY
     Route: 065
  5. LASIX [Concomitant]
     Indication: HYPERTENSION
     Route: 065
  6. TRINIPATCH [Concomitant]
     Indication: ISCHAEMIC CARDIOMYOPATHY
     Route: 065
  7. KALEORID [Concomitant]
     Indication: DRUG USE FOR UNKNOWN INDICATION
     Route: 065
  8. DESLORATADINE [Concomitant]
     Indication: DRUG USE FOR UNKNOWN INDICATION
     Route: 065
  9. PERMIXON [Concomitant]
     Indication: DRUG USE FOR UNKNOWN INDICATION
     Route: 065
  10. UMULINE [Concomitant]
     Indication: DRUG USE FOR UNKNOWN INDICATION
     Route: 065
  11. BRICANYL [Concomitant]
     Indication: DRUG USE FOR UNKNOWN INDICATION
     Route: 065
  12. ATROVENT [Concomitant]
     Indication: DRUG USE FOR UNKNOWN INDICATION
     Route: 065
  13. PULMICORT [Concomitant]
     Indication: DRUG USE FOR UNKNOWN INDICATION
     Route: 065

REACTIONS (3)
  - CONFUSIONAL STATE [None]
  - DEATH [None]
  - DELIRIUM [None]
